FAERS Safety Report 7176898-3 (Version None)
Quarter: 2010Q4

REPORT INFORMATION
  Report Type: 
  Country: None (occurrence: None)
  Receive Date: 20101215
  Receipt Date: 20101215
  Transmission Date: 20110411
  Serious: Yes (Hospitalization, Disabling)
  Sender: FDA-Public Use
  Company Number: None

PATIENT
  Age: 32 Year
  Sex: Female
  Weight: 52.3 kg

DRUGS (1)
  1. YAZ [Suspect]
     Indication: CONTRACEPTION
     Dosage: 1 PILL DAILY ORAL
     Route: 048
     Dates: start: 20080501, end: 20090701

REACTIONS (2)
  - ABDOMINAL PAIN [None]
  - GALLBLADDER DISORDER [None]
